FAERS Safety Report 7280136-0 (Version None)
Quarter: 2011Q1

REPORT INFORMATION
  Report Type: 
  Country: None (occurrence: None)
  Receive Date: 20110208
  Receipt Date: 20110131
  Transmission Date: 20110831
  Serious: Yes (Hospitalization)
  Sender: FDA-Public Use
  Company Number: US-JNJFOC-20110200404

PATIENT
  Sex: Male
  Weight: 87.54 kg

DRUGS (3)
  1. FENTANYL TRANSDERMAL SYSTEM [Suspect]
     Indication: INTERVERTEBRAL DISC PROTRUSION
     Dosage: 100UG/HR+25UG/HR
     Route: 062
  2. HYDROCODONE BITARTRATE [Concomitant]
     Indication: BREAKTHROUGH PAIN
     Route: 048
  3. DURAGESIC-50 [Suspect]
     Indication: INTERVERTEBRAL DISC PROTRUSION
     Dosage: 100UG/HR+25UG/HR
     Route: 062

REACTIONS (2)
  - SLEEP APNOEA SYNDROME [None]
  - PRODUCT QUALITY ISSUE [None]
